FAERS Safety Report 13334605 (Version 3)
Quarter: 2017Q2

REPORT INFORMATION
  Report Type: Report from Study
  Country: CA (occurrence: CA)
  Receive Date: 20170314
  Receipt Date: 20170516
  Transmission Date: 20170830
  Serious: Yes (Hospitalization)
  Sender: FDA-Public Use
  Company Number: CA-HLSUS-2017-CA-000174

PATIENT
  Age: 66 Year
  Sex: Female

DRUGS (1)
  1. CLOZARIL [Suspect]
     Active Substance: CLOZAPINE
     Dosage: 275 MG ONCE DAILY
     Route: 048
     Dates: start: 20110921, end: 201703

REACTIONS (3)
  - Oropharyngeal cancer [Unknown]
  - Pneumonia aspiration [Unknown]
  - Metastases to lung [Not Recovered/Not Resolved]

NARRATIVE: CASE EVENT DATE: 201702
